FAERS Safety Report 18912857 (Version 2)
Quarter: 2021Q2

REPORT INFORMATION
  Report Type: Report from Study
  Country: US (occurrence: US)
  Receive Date: 20210219
  Receipt Date: 20210408
  Transmission Date: 20210717
  Serious: Yes (Hospitalization)
  Sender: FDA-Public Use
  Company Number: US-EMD SERONO-9219302

PATIENT
  Sex: Female

DRUGS (1)
  1. REBIF [Suspect]
     Active Substance: INTERFERON BETA-1A
     Indication: PRODUCT USED FOR UNKNOWN INDICATION
     Route: 058
     Dates: start: 20180316

REACTIONS (5)
  - Urinary tract infection [Unknown]
  - Blood potassium decreased [Unknown]
  - Heart rate increased [Unknown]
  - COVID-19 [Unknown]
  - Blood pressure increased [Unknown]
